FAERS Safety Report 25737571 (Version 1)
Quarter: 2025Q3

REPORT INFORMATION
  Report Type: Spontaneous
  Country: US (occurrence: US)
  Receive Date: 20250828
  Receipt Date: 20250828
  Transmission Date: 20251020
  Serious: Yes (Hospitalization, Other)
  Sender: AMGEN
  Company Number: US-AMGEN-USASP2025169244

PATIENT
  Age: 81 Year
  Sex: Female

DRUGS (1)
  1. EVENITY [Suspect]
     Active Substance: ROMOSOZUMAB-AQQG
     Indication: Osteoporosis postmenopausal
     Dosage: UNK, QMO
     Route: 065
     Dates: start: 2023, end: 2024

REACTIONS (3)
  - Cerebral infarction [Recovered/Resolved]
  - Arrhythmia [Unknown]
  - Sepsis [Unknown]

NARRATIVE: CASE EVENT DATE: 20250101
